FAERS Safety Report 7690842-1 (Version None)
Quarter: 2011Q3

REPORT INFORMATION
  Report Type: 
  Country: None (occurrence: None)
  Receive Date: 20110818
  Receipt Date: 20110811
  Transmission Date: 20111222
  Serious: Yes (Life-Threatening, Hospitalization)
  Sender: FDA-Public Use
  Company Number: FR-AMGEN-FRASP2011040300

PATIENT
  Age: 41 Year
  Sex: Female

DRUGS (7)
  1. FEXOFENADINE HCL [Concomitant]
     Dosage: UNK
     Dates: start: 20060101
  2. MORPHINE SULFATE [Concomitant]
     Dosage: UNK
     Dates: start: 20060101
  3. MORPHINE SULFATE [Concomitant]
     Dosage: UNK
     Dates: start: 20060101
  4. NEXIUM [Concomitant]
     Dosage: UNK
     Dates: start: 20060101
  5. ENBREL [Suspect]
     Indication: ANKYLOSING SPONDYLITIS
     Dosage: 50 MG, WEEKLY
     Route: 058
     Dates: start: 20060701, end: 20090911
  6. ZOPICLONE [Concomitant]
     Dosage: UNK
     Dates: start: 20060101
  7. LEVOTHYROXINE SODIUM [Concomitant]
     Dosage: UNK
     Dates: start: 20060101

REACTIONS (3)
  - DRUG INEFFECTIVE [None]
  - THYROID NEOPLASM [None]
  - THYROID CANCER [None]
